FAERS Safety Report 8953685 (Version 1)
Quarter: 2012Q4

REPORT INFORMATION
  Report Type: 
  Country: US (occurrence: US)
  Receive Date: 20121206
  Receipt Date: 20121206
  Transmission Date: 20130627
  Serious: No
  Sender: FDA-Public Use
  Company Number: US-BAYER-2012-123499

PATIENT
  Age: 57 Year
  Sex: Male

DRUGS (1)
  1. BETASERON [Suspect]
     Indication: MS
     Dosage: 0.3 mg, QOD
     Route: 058
     Dates: start: 20071220

REACTIONS (1)
  - Injection site erythema [Not Recovered/Not Resolved]
